FAERS Safety Report 9837772 (Version 1)
Quarter: 2013Q4

REPORT INFORMATION
  Report Type: Spontaneous
  Country: US (occurrence: None)
  Receive Date: 20131205
  Receipt Date: 20131205
  Transmission Date: 20140711
  Serious: No
  Sender: FDA-Public Use
  Company Number: 163-POMAL-13083067

PATIENT
  Age: 68 Year
  Sex: Male

DRUGS (11)
  1. POMALYST (POMALIDOMIDE) (4 MILLIGRAM, CAPSULES) [Suspect]
     Indication: PLASMA CELL MYELOMA
     Dosage: 4 MG, 1 IN 1 D, PO
     Route: 048
     Dates: start: 20130425
  2. XANAX (ALPRAZOLAM) [Concomitant]
  3. ACYCLOVIR (ACICLOVIR) (ACICLOVIR) [Concomitant]
  4. LIPITOR (ATORVASTATIN) [Concomitant]
  5. VITAMIN D3 (COLECALCIFEROL) [Concomitant]
  6. MELATONEX (MELATONEX) [Concomitant]
  7. MORPHINE (MORPHINE) [Concomitant]
  8. COMPAZINE (PROCHLORPERAZINE EDISYLATE) [Concomitant]
  9. RYTHMOL (PROPAFENONE) [Concomitant]
  10. SENOKOT (SENNA FRUIT) [Concomitant]
  11. WARFARIN (WARFARIN) [Concomitant]

REACTIONS (2)
  - Somnolence [None]
  - Dizziness [None]
